FAERS Safety Report 4869332-7 (Version None)
Quarter: 2005Q4

REPORT INFORMATION
  Report Type: 
  Country: None (occurrence: None)
  Receive Date: 20051228
  Receipt Date: 20051228
  Transmission Date: 20060501
  Serious: Yes (Other)
  Sender: FDA-Public Use
  Company Number: None

PATIENT
  Sex: Male
  Weight: 70 kg

DRUGS (2)
  1. ENBREL [Suspect]
     Indication: PSORIASIS
     Dosage: 25 MG WEEKLY SQ
     Route: 058
     Dates: start: 20050201, end: 20051201
  2. LIDEX OINTMENT [Concomitant]

REACTIONS (5)
  - ANXIETY [None]
  - DISSOCIATION [None]
  - DISTURBANCE IN ATTENTION [None]
  - PANIC ATTACK [None]
  - THINKING ABNORMAL [None]
